FAERS Safety Report 18967567 (Version 2)
Quarter: 2021Q1

REPORT INFORMATION
  Report Type: Spontaneous
  Country: US (occurrence: US)
  Receive Date: 20210304
  Receipt Date: 20210312
  Transmission Date: 20210420
  Serious: Yes (Life-Threatening, Hospitalization, Other)
  Sender: FDA-Public Use
  Company Number: US-PFIZER INC-2021213714

PATIENT
  Age: 66 Year
  Sex: Female

DRUGS (5)
  1. OMEPRAZOLE. [Concomitant]
     Active Substance: OMEPRAZOLE
     Dosage: UNK
  2. METHOTREXATE SODIUM. [Suspect]
     Active Substance: METHOTREXATE SODIUM
     Indication: RHEUMATOID ARTHRITIS
     Dosage: FOR SEVERAL YEARS
  3. SPIRONOLACTONE. [Concomitant]
     Active Substance: SPIRONOLACTONE
     Dosage: UNK
  4. GABAPENTIN. [Concomitant]
     Active Substance: GABAPENTIN
     Indication: BACK PAIN
     Dosage: UNK
  5. PREDNISONE. [Concomitant]
     Active Substance: PREDNISONE
     Indication: RHEUMATOID ARTHRITIS
     Dosage: 20 MG, 1X/DAY

REACTIONS (22)
  - Renal failure [Unknown]
  - Hepatic failure [Unknown]
  - Coagulopathy [Unknown]
  - Histoplasmosis disseminated [Unknown]
  - Pancytopenia [Unknown]
  - Hyponatraemia [Unknown]
  - Malnutrition [Unknown]
  - Haemophagocytic lymphohistiocytosis [Unknown]
  - Lung infiltration [Unknown]
  - Appendicitis [Unknown]
  - Acute respiratory distress syndrome [Unknown]
  - Febrile neutropenia [Unknown]
  - Respiratory failure [Unknown]
  - Hypotension [Unknown]
  - Haemodynamic instability [Unknown]
  - Pulmonary granuloma [Unknown]
  - Bone marrow failure [Unknown]
  - Sepsis [Unknown]
  - Pleural effusion [Unknown]
  - Gastrointestinal haemorrhage [Unknown]
  - Multiple organ dysfunction syndrome [Unknown]
  - Delirium [Unknown]
